FAERS Safety Report 7374578-2 (Version None)
Quarter: 2011Q1

REPORT INFORMATION
  Report Type: 
  Country: None (occurrence: None)
  Receive Date: 20110325
  Receipt Date: 20100329
  Transmission Date: 20110831
  Serious: Yes (Hospitalization)
  Sender: FDA-Public Use
  Company Number: US-MYLANLABS-2010S1005556

PATIENT
  Age: 43 Year
  Sex: Female
  Weight: 56.7 kg

DRUGS (1)
  1. FENTANYL-100 [Suspect]
     Indication: PANCREATITIS CHRONIC
     Dosage: CHANGED Q72H
     Route: 062
     Dates: start: 20080101, end: 20100310

REACTIONS (1)
  - DRUG EFFECT INCREASED [None]
